FAERS Safety Report 6400586-1 (Version None)
Quarter: 2009Q4

REPORT INFORMATION
  Report Type: 
  Country: None (occurrence: None)
  Receive Date: 20091014
  Receipt Date: 20090930
  Transmission Date: 20100525
  Serious: Yes (Other)
  Sender: FDA-Public Use
  Company Number: PHHY2009DE42540

PATIENT
  Sex: Male
  Weight: 62 kg

DRUGS (9)
  1. EXJADE [Suspect]
     Indication: HAEMOSIDEROSIS
     Dosage: 500 MG PER DAY
     Route: 048
     Dates: start: 20080930, end: 20081124
  2. EXJADE [Suspect]
     Indication: MYELODYSPLASTIC SYNDROME
     Dosage: 1000 MG PER DAY
     Route: 048
     Dates: start: 20081125, end: 20090908
  3. ISCOVER [Concomitant]
     Indication: MYOCARDIAL INFARCTION
     Dosage: 75 MG PER DAY
     Route: 048
  4. METODURA [Concomitant]
     Indication: HYPERTENSION
     Dosage: 50 MG PER DAY
     Route: 048
  5. PIRACETAM [Concomitant]
     Dosage: 800 MG PER DAY
     Route: 048
  6. ALLOPURINOL [Concomitant]
     Indication: HYPERURICAEMIA
     Dosage: 300 MG PER DAY
     Route: 048
  7. ARELIX [Concomitant]
     Indication: CARDIAC FAILURE
     Dosage: 6 MG PER DAY
     Route: 048
  8. SIMVASTATIN [Concomitant]
     Indication: HYPERCHOLESTEROLAEMIA
     Route: 048
  9. AMLODIPINE [Concomitant]
     Indication: HYPERTENSION
     Dosage: 5 MG PER DAY
     Route: 048

REACTIONS (4)
  - HYPOAESTHESIA [None]
  - MUSCULAR WEAKNESS [None]
  - MYALGIA [None]
  - POLYNEUROPATHY [None]
